FAERS Safety Report 5672815-3 (Version None)
Quarter: 2008Q1

REPORT INFORMATION
  Report Type: 
  Country: None (occurrence: None)
  Receive Date: 20080319
  Receipt Date: 20071126
  Transmission Date: 20080703
  Serious: No
  Sender: FDA-Public Use
  Company Number: US-KINGPHARMUSA00001-K200701520

PATIENT

DRUGS (3)
  1. ALTACE [Suspect]
     Dosage: 5 MG, BID
     Route: 048
     Dates: end: 20070101
  2. ALTACE [Interacting]
     Dosage: 10 MG, BID
     Dates: start: 20070101
  3. POTASSIUM CHLORIDE [Concomitant]
     Indication: MINERAL SUPPLEMENTATION
     Dates: start: 20070901

REACTIONS (1)
  - BLOOD PRESSURE INCREASED [None]
